FAERS Safety Report 22526933 (Version 2)
Quarter: 2023Q2

REPORT INFORMATION
  Report Type: Report from Study
  Country: US (occurrence: US)
  Receive Date: 20230606
  Receipt Date: 20230609
  Transmission Date: 20230722
  Serious: No
  Sender: FDA-Public Use
  Company Number: US-KYOWAKIRIN-2023BKK008229

PATIENT

DRUGS (6)
  1. BUROSUMAB [Suspect]
     Active Substance: BUROSUMAB
     Indication: Hereditary hypophosphataemic rickets
     Dosage: 80 MG, 1X/4 WEEKS (STRENGTH 20 MG/ML AND 30 MG/ML COMBINED TO ACHIEVE DOSE OF 80 MG)
     Route: 058
     Dates: start: 20221218
  2. BUROSUMAB [Suspect]
     Active Substance: BUROSUMAB
     Indication: Hereditary hypophosphataemic rickets
     Dosage: 80 MG, 1X/4 WEEKS
     Route: 058
     Dates: start: 202305
  3. BUROSUMAB [Suspect]
     Active Substance: BUROSUMAB
     Dosage: 80 MG, 1X/4 WEEKS
     Route: 058
     Dates: start: 20230602
  4. BUROSUMAB [Suspect]
     Active Substance: BUROSUMAB
     Indication: Hereditary hypophosphataemic rickets
     Dosage: 80 MG, 1X/4 WEEKS (STRENGTH 20 MG/ML AND 30 MG/ML COMBINED TO ACHIEVE DOSE OF 80 MG)
     Route: 058
     Dates: start: 202302
  5. BUROSUMAB [Suspect]
     Active Substance: BUROSUMAB
     Indication: Hereditary hypophosphataemic rickets
     Dosage: 80 MG, 1X/4 WEEKS
     Route: 058
     Dates: start: 202305
  6. BUROSUMAB [Suspect]
     Active Substance: BUROSUMAB
     Dosage: 80 MG, 1X/4 WEEKS
     Route: 058
     Dates: start: 20230602

REACTIONS (2)
  - Blood phosphorus decreased [Not Recovered/Not Resolved]
  - Incorrect dose administered [Unknown]

NARRATIVE: CASE EVENT DATE: 20230501
